FAERS Safety Report 21655011 (Version 2)
Quarter: 2022Q4

REPORT INFORMATION
  Report Type: Report from Study
  Country: EG (occurrence: EG)
  Receive Date: 20221129
  Receipt Date: 20221212
  Transmission Date: 20230113
  Serious: Yes (Hospitalization, Other)
  Sender: FDA-Public Use
  Company Number: EG-002147023-NVSC2022EG265377

PATIENT
  Age: 2 Year
  Sex: Female
  Weight: 8.48 kg

DRUGS (1)
  1. ZOLGENSMA [Suspect]
     Active Substance: ONASEMNOGENE ABEPARVOVEC-XIOI
     Indication: Spinal muscular atrophy
     Dosage: 46.8 ML, ONCE/SINGLE
     Route: 042
     Dates: start: 20220719

REACTIONS (7)
  - Pneumonia [Unknown]
  - Nasopharyngitis [Unknown]
  - Pyrexia [Unknown]
  - Fatigue [Unknown]
  - Respiratory syncytial virus infection [Unknown]
  - General physical health deterioration [Unknown]
  - Decreased immune responsiveness [Unknown]

NARRATIVE: CASE EVENT DATE: 20221117
